FAERS Safety Report 9385657 (Version 1)
Quarter: 2013Q3

REPORT INFORMATION
  Report Type: Spontaneous
  Country: GB (occurrence: GB)
  Receive Date: 20130705
  Receipt Date: 20130705
  Transmission Date: 20140515
  Serious: Yes (Hospitalization)
  Sender: FDA-Public Use
  Company Number: GB-GLAXOSMITHKLINE-B0904596A

PATIENT
  Age: 54 Year
  Sex: Female

DRUGS (6)
  1. BECONASE [Suspect]
     Indication: RHINITIS
     Route: 055
     Dates: start: 20130613, end: 20130614
  2. METFORMIN [Concomitant]
  3. AMLODIPINE [Concomitant]
  4. ATENOLOL [Concomitant]
  5. RANITIDINE [Concomitant]
  6. RAMIPRIL [Concomitant]

REACTIONS (4)
  - Rash maculo-papular [Not Recovered/Not Resolved]
  - Pruritus [Recovering/Resolving]
  - Diarrhoea [Recovered/Resolved]
  - Vomiting [Recovered/Resolved]
